FAERS Safety Report 24235019 (Version 1)
Quarter: 2024Q3

REPORT INFORMATION
  Report Type: Spontaneous
  Country: US (occurrence: US)
  Receive Date: 20240821
  Receipt Date: 20240821
  Transmission Date: 20241017
  Serious: No
  Sender: Solventum
  Company Number: US-3M-2024-US-016944

PATIENT
  Age: 77 Year
  Sex: Female
  Weight: 65.77 kg

DRUGS (6)
  1. PERIDEX [Suspect]
     Active Substance: CHLORHEXIDINE GLUCONATE
     Indication: Dental care
     Route: 048
     Dates: start: 202310
  2. LISINOPRIL [Concomitant]
     Active Substance: LISINOPRIL
  3. PROBIOTICS NOS [Concomitant]
     Active Substance: PROBIOTICS NOS
  4. Prebiotics [Concomitant]
  5. VITAMINS [Concomitant]
     Active Substance: VITAMINS
  6. FLONASE [Concomitant]
     Active Substance: FLUTICASONE PROPIONATE

REACTIONS (6)
  - Oral mucosal blistering [Not Recovered/Not Resolved]
  - Oral pain [Not Recovered/Not Resolved]
  - Stomatitis [Not Recovered/Not Resolved]
  - Dry mouth [Not Recovered/Not Resolved]
  - Swollen tongue [Not Recovered/Not Resolved]
  - Depression [Not Recovered/Not Resolved]

NARRATIVE: CASE EVENT DATE: 20231001
